FAERS Safety Report 5466690-X (Version None)
Quarter: 2007Q3

REPORT INFORMATION
  Report Type: 
  Country: None (occurrence: None)
  Receive Date: 20070925
  Receipt Date: 20070918
  Transmission Date: 20080115
  Serious: Yes (Hospitalization)
  Sender: FDA-Public Use
  Company Number: NL-ASTRAZENECA-2007AC01700

PATIENT
  Age: 6871 Day
  Sex: Male

DRUGS (4)
  1. SYMBICORT [Suspect]
     Indication: ASTHMA
     Dosage: 160/4.5 (200/6)  UG TWO INHALATIONS BID
     Route: 055
     Dates: start: 20070706
  2. SYMBICORT [Suspect]
     Dosage: 160/4.5 (200/6) UG PRN
     Route: 055
     Dates: start: 20070706
  3. BRICANYL [Concomitant]
     Indication: ASTHMA
     Route: 055
  4. SINGULAIR [Concomitant]
     Indication: ASTHMA
     Route: 048

REACTIONS (1)
  - DYSPNOEA [None]
